FAERS Safety Report 9554664 (Version 1)
Quarter: 2013Q3

REPORT INFORMATION
  Report Type: Report from Study
  Country: US (occurrence: US)
  Receive Date: 20130925
  Receipt Date: 20130925
  Transmission Date: 20140515
  Serious: Yes (Death)
  Sender: FDA-Public Use
  Company Number: US-ROCHE-1281337

PATIENT
  Sex: Male

DRUGS (3)
  1. AVASTIN [Suspect]
     Indication: BRONCHIAL CARCINOMA
     Route: 065
  2. AVASTIN [Suspect]
     Indication: LUNG NEOPLASM MALIGNANT
  3. AVASTIN [Suspect]
     Indication: HEPATIC CANCER

REACTIONS (1)
  - Death [Fatal]
